FAERS Safety Report 6167701-9 (Version None)
Quarter: 2009Q2

REPORT INFORMATION
  Report Type: 
  Country: None (occurrence: None)
  Receive Date: 20090424
  Receipt Date: 20090417
  Transmission Date: 20091009
  Serious: Yes (Hospitalization)
  Sender: FDA-Public Use
  Company Number: JP-MERCK-0901USA02659

PATIENT
  Age: 10 Year
  Sex: Male
  Weight: 36 kg

DRUGS (4)
  1. PEPCID [Suspect]
     Indication: PANCREATITIS RELAPSING
     Route: 042
     Dates: start: 20090106, end: 20090112
  2. PEPCID [Suspect]
     Route: 042
     Dates: start: 20090113
  3. NAFAMOSTAT [Concomitant]
     Route: 065
     Dates: start: 20081225
  4. OMEPRAL [Suspect]
     Indication: PANCREATITIS RELAPSING
     Route: 042
     Dates: start: 20081226, end: 20090106

REACTIONS (1)
  - RENAL IMPAIRMENT [None]
